FAERS Safety Report 9333312 (Version 1)
Quarter: 2013Q2

REPORT INFORMATION
  Report Type: Spontaneous
  Country: US (occurrence: US)
  Receive Date: 20130606
  Receipt Date: 20130606
  Transmission Date: 20140414
  Serious: Yes (Hospitalization)
  Sender: FDA-Public Use
  Company Number: US-OPTIMER-20120170

PATIENT
  Age: 54 Year
  Sex: Male

DRUGS (1)
  1. DIFICID [Suspect]
     Indication: CLOSTRIDIUM DIFFICILE COLITIS
     Dosage: 200 MG, BID
     Route: 048
     Dates: start: 20111130, end: 20111210

REACTIONS (4)
  - Clostridium difficile colitis [Unknown]
  - Disease recurrence [Unknown]
  - White blood cell count increased [Unknown]
  - Off label use [Unknown]
